FAERS Safety Report 7028646-5 (Version None)
Quarter: 2010Q4

REPORT INFORMATION
  Report Type: 
  Country: None (occurrence: None)
  Receive Date: 20101005
  Receipt Date: 20100927
  Transmission Date: 20110411
  Serious: Yes (Hospitalization)
  Sender: FDA-Public Use
  Company Number: US-AMGEN-QUU441364

PATIENT
  Sex: Male

DRUGS (4)
  1. NPLATE [Suspect]
     Indication: IDIOPATHIC THROMBOCYTOPENIC PURPURA
     Dates: start: 20090708, end: 20090801
  2. CORTICOSTEROIDS [Concomitant]
  3. IMMU-G [Concomitant]
  4. RITUXIMAB [Concomitant]

REACTIONS (1)
  - HOSPITALISATION [None]
